FAERS Safety Report 13963275 (Version 2)
Quarter: 2018Q1

REPORT INFORMATION
  Report Type: Spontaneous
  Country: US (occurrence: US)
  Receive Date: 20170913
  Receipt Date: 20180122
  Transmission Date: 20180508
  Serious: Yes (Hospitalization)
  Sender: FDA-Public Use
  Company Number: US-PFIZER INC-2017393929

PATIENT
  Age: 66 Year
  Sex: Female

DRUGS (1)
  1. SOMAVERT [Suspect]
     Active Substance: PEGVISOMANT
     Indication: ACROMEGALY
     Dosage: 10 MG, CYCLIC [3 DAYS A WEEK]
     Dates: start: 200908

REACTIONS (2)
  - Weight decreased [Recovered/Resolved]
  - Pituitary tumour [Recovered/Resolved]

NARRATIVE: CASE EVENT DATE: 2010
